FAERS Safety Report 17667917 (Version 1)
Quarter: 2020Q2

REPORT INFORMATION
  Report Type: Report from Study
  Country: GB (occurrence: GB)
  Receive Date: 20200414
  Receipt Date: 20200414
  Transmission Date: 20200713
  Serious: Yes (Death, Other)
  Sender: FDA-Public Use
  Company Number: GB-SUN PHARMACEUTICAL INDUSTRIES LTD-2020R1-243888

PATIENT
  Age: 30 Year
  Sex: Male

DRUGS (3)
  1. CLOZAPINE. [Suspect]
     Active Substance: CLOZAPINE
     Indication: PRODUCT USED FOR UNKNOWN INDICATION
     Dosage: 200 MG, UNK
     Route: 065
  2. BENZODIAZEPINES [Concomitant]
     Active Substance: BENZODIAZEPINE
     Indication: PRODUCT USED FOR UNKNOWN INDICATION
     Dosage: UNK
     Route: 065
  3. ALCOHOL. [Concomitant]
     Active Substance: ALCOHOL
     Indication: PRODUCT USED FOR UNKNOWN INDICATION
     Dosage: UNK
     Route: 065

REACTIONS (8)
  - Blood alcohol increased [Unknown]
  - Blood pressure decreased [Unknown]
  - Antipsychotic drug level increased [Unknown]
  - Death [Fatal]
  - Loss of consciousness [Unknown]
  - Intentional product misuse [Unknown]
  - Poisoning [Unknown]
  - Dysarthria [Unknown]
